FAERS Safety Report 10013105 (Version 1)
Quarter: 2014Q1

REPORT INFORMATION
  Report Type: Spontaneous
  Country: US (occurrence: US)
  Receive Date: 20140314
  Receipt Date: 20140314
  Transmission Date: 20141002
  Serious: No
  Sender: FDA-Public Use
  Company Number: US-009507513-1403USA006542

PATIENT
  Age: 14 Year
  Sex: Female

DRUGS (4)
  1. TEMOZOLOMIDE [Suspect]
     Indication: GLIOBLASTOMA
     Dosage: 90 MG/M2, QD
     Route: 048
  2. TEMOZOLOMIDE [Suspect]
     Dosage: 200 MG/M2, QD ON DAYS 1 TO 5 ON 12 28-DAY CYCLES
  3. BEVACIZUMAB [Concomitant]
     Dosage: 5 MG/KG, EVERY 14 DAYS
     Route: 042
  4. BEVACIZUMAB [Concomitant]
     Dosage: 10 MG/KG, BIW

REACTIONS (1)
  - Nausea [Unknown]
